FAERS Safety Report 4992430-4 (Version None)
Quarter: 2006Q1

REPORT INFORMATION
  Report Type: 
  Country: None (occurrence: None)
  Receive Date: 20060314
  Receipt Date: 20060106
  Transmission Date: 20060701
  Serious: Yes (Disabling, Other)
  Sender: FDA-Public Use
  Company Number: 2005-02082

PATIENT
  Age: 85 Year
  Sex: Male
  Weight: 80.7 kg

DRUGS (10)
  1. VELCADE [Suspect]
     Indication: WALDENSTROM'S MACROGLOBULINAEMIA
     Dosage: 2.60 MG, INTRAVENOUS; SEE IMAGE
     Route: 042
     Dates: start: 20050802, end: 20050923
  2. VELCADE [Suspect]
     Indication: WALDENSTROM'S MACROGLOBULINAEMIA
     Dosage: 2.60 MG, INTRAVENOUS; SEE IMAGE
     Route: 042
     Dates: start: 20051025
  3. TERAZOSIN (TERAZOSIN) [Concomitant]
  4. ACYCLOVIR [Concomitant]
  5. TEMAZEPAM [Concomitant]
  6. PROCHLORPERAZONE (PROCHLORPERAZINE) [Concomitant]
  7. VICODIN [Concomitant]
  8. FAMOTIDINE [Concomitant]
  9. ANZEMET [Concomitant]
  10. PAMIDRONATE DISODIUM [Concomitant]

REACTIONS (3)
  - DEAFNESS [None]
  - POLYNEUROPATHY [None]
  - VISUAL DISTURBANCE [None]
